FAERS Safety Report 6055093-5 (Version None)
Quarter: 2009Q1

REPORT INFORMATION
  Report Type: 
  Country: None (occurrence: None)
  Receive Date: 20090123
  Receipt Date: 20090108
  Transmission Date: 20090719
  Serious: Yes (Hospitalization)
  Sender: FDA-Public Use
  Company Number: 2008-180467-NL

PATIENT
  Age: 44 Year
  Sex: Female
  Weight: 72.6 kg

DRUGS (1)
  1. NUVARING [Suspect]
     Indication: MENSTRUATION IRREGULAR
     Dosage: Q 25 DAYS
     Dates: start: 20040501, end: 20040711

REACTIONS (10)
  - ABDOMINAL PAIN [None]
  - ANEURYSM [None]
  - GRAND MAL CONVULSION [None]
  - HAEMATOMA [None]
  - MENORRHAGIA [None]
  - NECK MASS [None]
  - SUBDURAL HAEMATOMA [None]
  - SUPERIOR SAGITTAL SINUS THROMBOSIS [None]
  - UTERINE LEIOMYOMA [None]
  - VAGINAL HAEMORRHAGE [None]
